FAERS Safety Report 8458742-7 (Version None)
Quarter: 2012Q2

REPORT INFORMATION
  Report Type: 
  Country: None (occurrence: None)
  Receive Date: 20120622
  Receipt Date: 20120614
  Transmission Date: 20120825
  Serious: Yes (Hospitalization)
  Sender: FDA-Public Use
  Company Number: US-VIROPHARMA INCORPORATED-20120614CINRY3060

PATIENT
  Sex: Female

DRUGS (4)
  1. CINRYZE [Suspect]
     Indication: HEREDITARY ANGIOEDEMA
     Dates: start: 20120201
  2. VALPROIC ACID [Concomitant]
     Indication: HEADACHE
     Dosage: UNKNOWN
     Route: 065
  3. ALBUTEROL [Concomitant]
     Indication: ASTHMA
     Dosage: UNKNOWN
     Route: 065
  4. ADVAIR DISKUS 100/50 [Concomitant]
     Indication: ASTHMA

REACTIONS (3)
  - STAPHYLOCOCCAL SEPSIS [None]
  - DEVICE RELATED SEPSIS [None]
  - PSEUDOMONAL SEPSIS [None]
